FAERS Safety Report 7761414-5 (Version None)
Quarter: 2011Q3

REPORT INFORMATION
  Report Type: 
  Country: None (occurrence: None)
  Receive Date: 20110920
  Receipt Date: 20110909
  Transmission Date: 20111222
  Serious: Yes (Other)
  Sender: FDA-Public Use
  Company Number: IE-JNJFOC-20110705460

PATIENT
  Sex: Male
  Weight: 53.52 kg

DRUGS (2)
  1. INVEGA [Suspect]
     Indication: PRODUCT USED FOR UNKNOWN INDICATION
     Route: 048
     Dates: end: 20110101
  2. INVEGA [Suspect]
     Route: 048

REACTIONS (24)
  - MUSCULOSKELETAL STIFFNESS [None]
  - CONTUSION [None]
  - ABDOMINAL PAIN UPPER [None]
  - MUSCLE TWITCHING [None]
  - MUSCULAR WEAKNESS [None]
  - HEADACHE [None]
  - DIZZINESS [None]
  - MUSCULOSKELETAL CHEST PAIN [None]
  - FATIGUE [None]
  - HYPOCHONDRIASIS [None]
  - MUSCLE SPASMS [None]
  - HYPERSOMNIA [None]
  - OROPHARYNGEAL PAIN [None]
  - DYSPEPSIA [None]
  - GASTROINTESTINAL DISORDER [None]
  - ANXIETY [None]
  - OROPHARYNGEAL SWELLING [None]
  - HYPOTHYROIDISM [None]
  - POLLAKIURIA [None]
  - CHEST DISCOMFORT [None]
  - LETHARGY [None]
  - DEPRESSION [None]
  - WEIGHT DECREASED [None]
  - BLOOD PROLACTIN INCREASED [None]
